FAERS Safety Report 11716521 (Version 2)
Quarter: 2015Q4

REPORT INFORMATION
  Report Type: Spontaneous
  Country: US (occurrence: US)
  Receive Date: 20151104
  Receipt Date: 20151110
  Transmission Date: 20160304
  Serious: No
  Sender: FDA-Public Use
  Company Number: US-ELI_LILLY_AND_COMPANY-US201108007741

PATIENT
  Sex: Female

DRUGS (3)
  1. ALLERGY MEDICATION [Concomitant]
     Active Substance: DIPHENHYDRAMINE HYDROCHLORIDE
  2. FORTEO [Suspect]
     Active Substance: TERIPARATIDE
     Indication: OSTEOPOROSIS
     Dosage: 20 UG, QD
  3. FORTEO [Suspect]
     Active Substance: TERIPARATIDE
     Dosage: 20 UG, QD

REACTIONS (7)
  - Hypersensitivity [Unknown]
  - Paranasal sinus hypersecretion [Unknown]
  - Injection site bruising [Unknown]
  - Nasal congestion [Unknown]
  - Arthralgia [Recovered/Resolved]
  - Visual impairment [Unknown]
  - Dizziness postural [Unknown]
